FAERS Safety Report 17075495 (Version 4)
Quarter: 2020Q1

REPORT INFORMATION
  Report Type: Spontaneous
  Country: US (occurrence: US)
  Receive Date: 20191126
  Receipt Date: 20200330
  Transmission Date: 20200409
  Serious: No
  Sender: FDA-Public Use
  Company Number: US-PFIZER INC-2019508054

PATIENT
  Age: 62 Year
  Sex: Female
  Weight: 72.56 kg

DRUGS (20)
  1. IRON + VITAMIN C [Concomitant]
     Active Substance: ASCORBIC ACID\IRON
     Dosage: UNK, 3X/DAY
     Dates: start: 201907
  2. MONTELUKAST SODIUM. [Concomitant]
     Active Substance: MONTELUKAST SODIUM
     Dosage: 10 MG, UNK
     Dates: start: 201704
  3. ASPIR LOW [Concomitant]
     Active Substance: ASPIRIN
     Dosage: 81 MG, UNK
  4. VENTOLIN [Concomitant]
     Active Substance: ALBUTEROL SULFATE
     Dosage: UNK, AS NEEDED {RESCUE INHALER PRN (AS NEEDED) RARELY USED}
     Route: 055
     Dates: start: 2005
  5. ASPIRIN [ACETYLSALICYLIC ACID] [Concomitant]
     Active Substance: ASPIRIN
     Dosage: UNK (LOW DOSE)
     Dates: start: 201911
  6. GAS-X [Concomitant]
     Active Substance: DIMETHICONE
     Dosage: 125 MG, UNK
     Dates: start: 201904
  7. CARVEDILOL. [Concomitant]
     Active Substance: CARVEDILOL
     Dosage: 12.5 MG, UNK
     Dates: start: 2015
  8. CALCIUM [Concomitant]
     Active Substance: CALCIUM
     Dosage: UNK(500(1250) TABLET)
  9. VITAMIN D2 [Concomitant]
     Active Substance: ERGOCALCIFEROL
     Dosage: 1250 UG, UNK
  10. VENTOLIN HFA [Concomitant]
     Active Substance: ALBUTEROL SULFATE
     Dosage: 90 UG, UNK
  11. VIT.D3 [Concomitant]
     Dosage: UNK
     Dates: start: 201605
  12. FASLODEX [Suspect]
     Active Substance: FULVESTRANT
     Indication: BREAST CANCER METASTATIC
     Dosage: UNK(250 MG/5ML SYRINGE)
     Dates: start: 201905
  13. ZYRTEC [Concomitant]
     Active Substance: CETIRIZINE HYDROCHLORIDE
     Dosage: 10 MG, UNK
     Dates: start: 201704
  14. IBRANCE [Suspect]
     Active Substance: PALBOCICLIB
     Indication: BREAST NEOPLASM
  15. PEPCID AC [Concomitant]
     Active Substance: FAMOTIDINE
     Dosage: 10 MG, UNK
     Dates: start: 201905
  16. TRULICITY [Concomitant]
     Active Substance: DULAGLUTIDE
     Dosage: UNK(0.75MG/0.5 PEN INJECTR)
  17. IBRANCE [Suspect]
     Active Substance: PALBOCICLIB
     Indication: BREAST CANCER FEMALE
     Dosage: 125 MG, CYCLIC [DAILY FOR 21 OUT OF 28 DAY]
     Route: 048
     Dates: start: 20190601
  18. IBRANCE [Suspect]
     Active Substance: PALBOCICLIB
     Indication: BREAST CANCER METASTATIC
     Dosage: 125 MG, CYCLIC [DAILY FOR 21 OUT OF 28 DAY]
     Route: 048
  19. FULVESTRANT. [Concomitant]
     Active Substance: FULVESTRANT
     Dosage: UNK(250 MG/5ML SYRINGE)
     Dates: start: 201905
  20. QUINAPRIL. [Concomitant]
     Active Substance: QUINAPRIL
     Dosage: 20 MG, UNK
     Dates: start: 2014

REACTIONS (4)
  - Neutrophil count decreased [Not Recovered/Not Resolved]
  - Blood count abnormal [Not Recovered/Not Resolved]
  - Blood glucose increased [Not Recovered/Not Resolved]
  - Neoplasm progression [Unknown]

NARRATIVE: CASE EVENT DATE: 201906
